FAERS Safety Report 11590973 (Version 1)
Quarter: 2015Q4

REPORT INFORMATION
  Report Type: Spontaneous
  Country: US (occurrence: US)
  Receive Date: 20151003
  Receipt Date: 20151003
  Transmission Date: 20160304
  Serious: Yes (Hospitalization, Other)
  Sender: FDA-Public Use
  Company Number: US-ZYDUS-009152

PATIENT
  Age: 26 Year
  Sex: Male

DRUGS (3)
  1. HYDROXYCHLOROQUINE [Suspect]
     Active Substance: HYDROXYCHLOROQUINE
     Indication: SYSTEMIC LUPUS ERYTHEMATOSUS
     Dosage: 200MG B.I.D
  2. PREDNISONE. [Suspect]
     Active Substance: PREDNISONE
     Indication: SYSTEMIC LUPUS ERYTHEMATOSUS
  3. MYCOPHENOLIC ACID. [Suspect]
     Active Substance: MYCOPHENOLIC ACID
     Indication: SYSTEMIC LUPUS ERYTHEMATOSUS
     Dosage: 1000 MG BID

REACTIONS (7)
  - Cutaneous vasculitis [None]
  - Haemoglobin decreased [None]
  - Autoimmune hepatitis [None]
  - Drug-induced liver injury [Recovered/Resolved]
  - Dyspnoea [Recovered/Resolved]
  - Pulmonary alveolar haemorrhage [None]
  - Bone marrow disorder [None]

NARRATIVE: CASE EVENT DATE: 20150221
